FAERS Safety Report 4482859-5 (Version None)
Quarter: 2004Q4

REPORT INFORMATION
  Report Type: 
  Country: None (occurrence: None)
  Receive Date: 20041022
  Receipt Date: 20030605
  Transmission Date: 20050328
  Serious: Yes (Other)
  Sender: FDA-Public Use
  Company Number: US-MERCK-0306USA00757

PATIENT
  Age: 53 Year
  Sex: Male
  Weight: 84 kg

DRUGS (10)
  1. VIOXX [Suspect]
     Indication: OSTEOARTHRITIS
     Route: 048
     Dates: start: 19990729
  2. VIOXX [Suspect]
     Route: 048
     Dates: start: 19990729
  3. CELEBREX [Concomitant]
     Route: 065
     Dates: start: 19990412, end: 19990502
  4. CELEBREX [Concomitant]
     Route: 048
     Dates: start: 19990503, end: 19990726
  5. PAXIL [Concomitant]
     Route: 065
     Dates: start: 19990727
  6. PAXIL [Concomitant]
     Route: 065
  7. PAXIL [Concomitant]
     Route: 065
     Dates: end: 19990913
  8. ELAVIL [Concomitant]
     Route: 048
  9. DARVOCET-N 100 [Concomitant]
     Route: 065
     Dates: start: 19990101
  10. VICODIN [Concomitant]
     Route: 065
     Dates: start: 19990101

REACTIONS (5)
  - ADVERSE EVENT [None]
  - ANGINA PECTORIS [None]
  - BLOOD PRESSURE INCREASED [None]
  - CONVULSION [None]
  - EJACULATION DISORDER [None]
